FAERS Safety Report 14624392 (Version 1)
Quarter: 2018Q1

REPORT INFORMATION
  Report Type: Spontaneous
  Country: US (occurrence: US)
  Receive Date: 20180310
  Receipt Date: 20180310
  Transmission Date: 20180509
  Serious: Yes (Life-Threatening, Hospitalization, Disabling)
  Sender: FDA-Public Use
  Company Number: None

PATIENT
  Age: 64 Year
  Sex: Male
  Weight: 108 kg

DRUGS (4)
  1. ZOCOR [Suspect]
     Active Substance: SIMVASTATIN
     Indication: BLOOD CHOLESTEROL DECREASED
     Dosage: ?          QUANTITY:1 TABLET(S);?
     Route: 048
     Dates: start: 20140118, end: 20140327
  2. MINERAL SUPPLEMENT [Concomitant]
  3. UBIQUINOL [Concomitant]
     Active Substance: UBIQUINOL
  4. VITAMIN [Concomitant]
     Active Substance: VITAMINS

REACTIONS (4)
  - Bankruptcy [None]
  - Balance disorder [None]
  - Lymphoma [None]
  - Ischaemic stroke [None]

NARRATIVE: CASE EVENT DATE: 20140327
